FAERS Safety Report 11390747 (Version 1)
Quarter: 2015Q3

REPORT INFORMATION
  Report Type: Spontaneous
  Country: BR (occurrence: None)
  Receive Date: 20150813
  Receipt Date: 20150813
  Transmission Date: 20151125
  Serious: Yes (Other)
  Sender: FDA-Public Use
  Company Number: 1661812

PATIENT
  Age: 29 Year
  Sex: Male

DRUGS (2)
  1. PROPAFENONE HYDROCHLORIDE (NON-SPECIFC) [Suspect]
     Active Substance: PROPAFENONE HYDROCHLORIDE
     Indication: PROPHYLAXIS
  2. PROPAFENONE HYDROCHLORIDE (NON-SPECIFC) [Suspect]
     Active Substance: PROPAFENONE HYDROCHLORIDE
     Indication: SUPRAVENTRICULAR TACHYCARDIA

REACTIONS (1)
  - Brugada syndrome [None]
